FAERS Safety Report 19320227 (Version 1)
Quarter: 2021Q2

REPORT INFORMATION
  Report Type: Spontaneous
  Country: US (occurrence: US)
  Receive Date: 20210528
  Receipt Date: 20210528
  Transmission Date: 20210717
  Serious: Yes (Death)
  Sender: FDA-Public Use
  Company Number: None

PATIENT
  Age: 92 Year
  Sex: Male
  Weight: 80.29 kg

DRUGS (1)
  1. REMDESIVIR (REMDESIVIR 100MG/VIAL INJ) [Suspect]
     Active Substance: REMDESIVIR
     Dates: start: 20210118, end: 20210122

REACTIONS (9)
  - Joint injury [None]
  - Upper respiratory tract infection [None]
  - Acute respiratory failure [None]
  - SARS-CoV-2 antibody test positive [None]
  - Oxygen saturation decreased [None]
  - Fall [None]
  - Contusion [None]
  - Head injury [None]
  - Femoral neck fracture [None]

NARRATIVE: CASE EVENT DATE: 20210124
